FAERS Safety Report 23944260 (Version 2)
Quarter: 2024Q3

REPORT INFORMATION
  Report Type: Spontaneous
  Country: GR (occurrence: GR)
  Receive Date: 20240606
  Receipt Date: 20240722
  Transmission Date: 20241017
  Serious: Yes (Other)
  Sender: ROCHE
  Company Number: None

PATIENT
  Age: 63 Year
  Sex: Male

DRUGS (14)
  1. ATEZOLIZUMAB [Suspect]
     Active Substance: ATEZOLIZUMAB
     Indication: Mixed hepatocellular cholangiocarcinoma
     Route: 065
  2. ATEZOLIZUMAB [Suspect]
     Active Substance: ATEZOLIZUMAB
     Indication: Hepatocellular carcinoma
  3. BEVACIZUMAB [Suspect]
     Active Substance: BEVACIZUMAB
     Indication: Hepatocellular carcinoma
     Dosage: UNK
     Route: 065
  4. BEVACIZUMAB [Suspect]
     Active Substance: BEVACIZUMAB
     Indication: Cholangiocarcinoma
  5. CISPLATIN [Concomitant]
     Active Substance: CISPLATIN
     Indication: Cholangiocarcinoma
     Dosage: UNK, FOR PERIOD OF 22 MONTHS
     Route: 065
  6. CISPLATIN [Concomitant]
     Active Substance: CISPLATIN
     Indication: Hepatocellular carcinoma
  7. LEUCOVORIN CALCIUM [Concomitant]
     Active Substance: LEUCOVORIN CALCIUM
     Indication: Cholangiocarcinoma
  8. LEUCOVORIN CALCIUM [Concomitant]
     Active Substance: LEUCOVORIN CALCIUM
     Indication: Hepatocellular carcinoma
  9. FLUOROURACIL [Concomitant]
     Active Substance: FLUOROURACIL
     Indication: Cholangiocarcinoma
  10. FLUOROURACIL [Concomitant]
     Active Substance: FLUOROURACIL
     Indication: Hepatocellular carcinoma
  11. GEMCITABINE [Concomitant]
     Active Substance: GEMCITABINE
     Indication: Cholangiocarcinoma
     Dosage: UNK, FOR PERIOD OF 22 MONTHS
     Route: 065
  12. GEMCITABINE [Concomitant]
     Active Substance: GEMCITABINE
     Indication: Hepatocellular carcinoma
  13. IRINOTECAN HYDROCHLORIDE [Concomitant]
     Active Substance: IRINOTECAN HYDROCHLORIDE
     Indication: Cholangiocarcinoma
  14. IRINOTECAN HYDROCHLORIDE [Concomitant]
     Active Substance: IRINOTECAN HYDROCHLORIDE
     Indication: Hepatocellular carcinoma

REACTIONS (5)
  - End stage renal disease [Unknown]
  - Pulmonary oedema [Unknown]
  - Disease progression [Recovered/Resolved]
  - Mesangioproliferative glomerulonephritis [Unknown]
  - Off label use [Unknown]
